FAERS Safety Report 9968291 (Version 1)
Quarter: 2014Q1

REPORT INFORMATION
  Report Type: Report from Study
  Country: US (occurrence: US)
  Receive Date: 20140306
  Receipt Date: 20140306
  Transmission Date: 20141002
  Serious: No
  Sender: FDA-Public Use
  Company Number: US-ABBVIE-13P-163-1143025-00

PATIENT
  Sex: Female

DRUGS (19)
  1. HUMIRA [Suspect]
     Indication: RHEUMATOID ARTHRITIS
     Dates: start: 2005
  2. HUMIRA [Suspect]
  3. HUMIRA [Suspect]
     Dates: start: 2011
  4. PREMARIN [Concomitant]
     Indication: HYSTERECTOMY
  5. BUSPAR [Concomitant]
     Indication: UNEVALUABLE EVENT
     Dosage: 1 TAB IN AM AND 1 TAB IN PM
  6. LITHIUM [Concomitant]
     Indication: UNEVALUABLE EVENT
     Dosage: AT NIGHT
  7. TRAZODONE [Concomitant]
     Indication: INSOMNIA
  8. IMITREX [Concomitant]
     Indication: MIGRAINE
     Dosage: 100 MG 1-2 TABS
  9. MULTIVITAMIN [Concomitant]
     Indication: PRODUCT USED FOR UNKNOWN INDICATION
  10. BABY ASPIRIN [Concomitant]
     Indication: THROMBOSIS
  11. CALCIUM [Concomitant]
     Indication: SUPPLEMENTATION THERAPY
  12. SAM-E [Concomitant]
     Indication: PRODUCT USED FOR UNKNOWN INDICATION
  13. FLEXIPRIN [Concomitant]
     Indication: RHEUMATOID ARTHRITIS
  14. PROBIOTICS [Concomitant]
     Indication: PRODUCT USED FOR UNKNOWN INDICATION
  15. LEVOTHYROXINE [Concomitant]
     Indication: PRODUCT USED FOR UNKNOWN INDICATION
  16. LEVOTHYROXINE [Concomitant]
  17. PANTOPRAZOLE [Concomitant]
     Indication: GASTROOESOPHAGEAL REFLUX DISEASE
  18. ALLEGRA [Concomitant]
     Indication: HYPERSENSITIVITY
  19. DIGEST PILL [Concomitant]
     Indication: COLITIS

REACTIONS (7)
  - Full blood count decreased [Not Recovered/Not Resolved]
  - Rash [Not Recovered/Not Resolved]
  - Blood cholesterol increased [Not Recovered/Not Resolved]
  - Bronchitis [Not Recovered/Not Resolved]
  - Influenza [Not Recovered/Not Resolved]
  - Colitis [Unknown]
  - Rash [Unknown]
